FAERS Safety Report 7162965-7 (Version None)
Quarter: 2010Q4

REPORT INFORMATION
  Report Type: 
  Country: None (occurrence: None)
  Receive Date: 20101202
  Receipt Date: 20101122
  Transmission Date: 20110411
  Serious: Yes (Life-Threatening, Hospitalization, Other)
  Sender: FDA-Public Use
  Company Number: 2009AC000100

PATIENT
  Age: 57 Year
  Sex: Female

DRUGS (33)
  1. DIGOXIN [Suspect]
     Indication: PRODUCT USED FOR UNKNOWN INDICATION
     Dosage: 0.125 MG;TIW;PO
     Route: 048
     Dates: start: 20030115
  2. DIGOXIN [Suspect]
     Indication: PRODUCT USED FOR UNKNOWN INDICATION
     Dosage: 0.25 MG;QD;PO
     Route: 048
  3. DIGOXIN [Suspect]
     Indication: ATRIAL TACHYCARDIA
     Dosage: PO
     Route: 048
     Dates: start: 19951101, end: 20070809
  4. ASPIRIN [Concomitant]
  5. ARIMIDEX [Concomitant]
  6. CALCIUM [Concomitant]
  7. ZETIA [Concomitant]
  8. GEMFIBROZIL [Concomitant]
  9. LISINOPRIL [Concomitant]
  10. ALLOPURINOL [Concomitant]
  11. SIMVASTATIN [Concomitant]
  12. INDERAL [Concomitant]
  13. SELENIUM [Concomitant]
  14. FEMARA [Concomitant]
  15. GLUCOSAMINE [Concomitant]
  16. MULTI-VITAMINS [Concomitant]
  17. FISH OIL [Concomitant]
  18. PROPRANOLOL [Concomitant]
  19. TIMOPTIC-XE [Concomitant]
  20. ALPHAGAN [Concomitant]
  21. OPTIPRANOLOL [Concomitant]
  22. KEFLEX [Concomitant]
  23. LUMIGAN [Concomitant]
  24. LISINOPRIL [Concomitant]
  25. HYDROCHLOROTHIAZIDE [Concomitant]
  26. ARIMIDEX [Concomitant]
  27. ALLOPURINOL [Concomitant]
  28. ASPIRIN [Concomitant]
  29. LOESTRIN 1.5/30 [Concomitant]
  30. ZOSYN [Concomitant]
  31. GEN TEAL DROPS [Concomitant]
  32. CHONDROITIN [Concomitant]
  33. HERBAL SUPPLEMENTS [Concomitant]

REACTIONS (71)
  - ABDOMINAL DISTENSION [None]
  - AMNESIA [None]
  - ANXIETY [None]
  - AORTIC VALVE INCOMPETENCE [None]
  - AORTIC VALVE SCLEROSIS [None]
  - ARRHYTHMIA [None]
  - ASTHENIA [None]
  - ATRIOVENTRICULAR BLOCK FIRST DEGREE [None]
  - ATRIOVENTRICULAR BLOCK SECOND DEGREE [None]
  - BRADYCARDIA [None]
  - BREAST CALCIFICATIONS [None]
  - BREAST CANCER METASTATIC [None]
  - CARDIOACTIVE DRUG LEVEL DECREASED [None]
  - CAROTID ARTERY STENOSIS [None]
  - CHEST DISCOMFORT [None]
  - CONTUSION [None]
  - COUGH [None]
  - CYSTOCELE [None]
  - DECREASED APPETITE [None]
  - DERMATITIS [None]
  - DIARRHOEA [None]
  - DIPLOPIA [None]
  - DIZZINESS [None]
  - DYSLIPIDAEMIA [None]
  - DYSPEPSIA [None]
  - DYSPNOEA [None]
  - DYSURIA [None]
  - ECCHYMOSIS [None]
  - ELECTROCARDIOGRAM POOR R-WAVE PROGRESSION [None]
  - ELECTROCARDIOGRAM Q WAVE ABNORMAL [None]
  - ELECTROCARDIOGRAM QT PROLONGED [None]
  - ELECTROCARDIOGRAM ST-T CHANGE [None]
  - ELECTROCARDIOGRAM T WAVE ABNORMAL [None]
  - FATIGUE [None]
  - GLAUCOMA [None]
  - GOUT [None]
  - HAEMATURIA [None]
  - HEADACHE [None]
  - HYPERLIPIDAEMIA [None]
  - HYPERTENSION [None]
  - INSOMNIA [None]
  - LYMPHOEDEMA [None]
  - MITRAL VALVE INCOMPETENCE [None]
  - MOOD SWINGS [None]
  - MUSCLE SPASMS [None]
  - MYALGIA [None]
  - MYOSITIS [None]
  - NECK PAIN [None]
  - OEDEMA PERIPHERAL [None]
  - OROPHARYNGEAL PAIN [None]
  - PAIN [None]
  - PALPITATIONS [None]
  - PERIPHERAL VASCULAR DISORDER [None]
  - POST PROCEDURAL CELLULITIS [None]
  - POSTOPERATIVE WOUND INFECTION [None]
  - PRESYNCOPE [None]
  - PULMONARY HYPERTENSION [None]
  - RECTOCELE [None]
  - REFLUX OESOPHAGITIS [None]
  - RHINITIS ALLERGIC [None]
  - ROTATOR CUFF SYNDROME [None]
  - SKIN PAPILLOMA [None]
  - SUPRAVENTRICULAR EXTRASYSTOLES [None]
  - SUPRAVENTRICULAR TACHYCARDIA [None]
  - SYNCOPE [None]
  - THERAPEUTIC AGENT TOXICITY [None]
  - TRICUSPID VALVE INCOMPETENCE [None]
  - UPPER RESPIRATORY TRACT INFECTION [None]
  - VENTRICULAR EXTRASYSTOLES [None]
  - VISUAL IMPAIRMENT [None]
  - WEIGHT DECREASED [None]
